FAERS Safety Report 20783598 (Version 1)
Quarter: 2022Q2

REPORT INFORMATION
  Report Type: Spontaneous
  Country: US (occurrence: US)
  Receive Date: 20220504
  Receipt Date: 20220504
  Transmission Date: 20220721
  Serious: Yes (Other)
  Sender: FDA-Public Use
  Company Number: US-BRISTOL-MYERS SQUIBB COMPANY-2022-028983

PATIENT
  Age: 42 Year
  Sex: Female
  Weight: 58.9 kg

DRUGS (3)
  1. ELIQUIS [Suspect]
     Active Substance: APIXABAN
     Indication: Deep vein thrombosis
     Dosage: TWO TIMES A DAY
     Route: 048
     Dates: start: 202201
  2. ELIQUIS [Suspect]
     Active Substance: APIXABAN
     Indication: Pulmonary embolism
  3. HYDROCODONE [Concomitant]
     Active Substance: HYDROCODONE
     Indication: Product used for unknown indication
     Route: 065

REACTIONS (9)
  - Ocular hyperaemia [Unknown]
  - Vaginal haemorrhage [Unknown]
  - Adverse event [Unknown]
  - Haemorrhage [Unknown]
  - Menstrual disorder [Unknown]
  - Palpitations [Unknown]
  - Dyspnoea [Unknown]
  - Vertigo [Unknown]
  - Hypersensitivity [Unknown]

NARRATIVE: CASE EVENT DATE: 20220101
